FAERS Safety Report 4869619-8 (Version None)
Quarter: 2005Q4

REPORT INFORMATION
  Report Type: 
  Country: None (occurrence: None)
  Receive Date: 20051227
  Receipt Date: 20051212
  Transmission Date: 20060501
  Serious: Yes (Hospitalization)
  Sender: FDA-Public Use
  Company Number: T05-GER-05723-01

PATIENT
  Age: 60 Year
  Sex: Male

DRUGS (1)
  1. CAMPRAL [Suspect]
     Dosage: 666 MG TID PO
     Route: 048
     Dates: start: 20050620

REACTIONS (1)
  - CEREBRAL INFARCTION [None]
